FAERS Safety Report 13978397 (Version 17)
Quarter: 2018Q4

REPORT INFORMATION
  Report Type: Spontaneous
  Country: US (occurrence: US)
  Receive Date: 20170915
  Receipt Date: 20181214
  Transmission Date: 20190204
  Serious: Yes (Hospitalization, Other)
  Sender: FDA-Public Use
  Company Number: US-ACTELION-A-NJ2017-159484

PATIENT
  Age: 70 Year
  Sex: Female
  Weight: 44.44 kg

DRUGS (6)
  1. TRACLEER [Suspect]
     Active Substance: BOSENTAN
     Dosage: 62.5 MG, BID
     Route: 048
  2. TYVASO [Concomitant]
     Active Substance: TREPROSTINIL
     Indication: PRODUCT USED FOR UNKNOWN INDICATION
     Dosage: 9 BREATHS, QID
     Route: 055
  3. TYVASO [Concomitant]
     Active Substance: TREPROSTINIL
     Dosage: 7 BREATHS, QID
     Route: 055
  4. TRACLEER [Suspect]
     Active Substance: BOSENTAN
     Indication: PULMONARY HYPERTENSION
     Dosage: 125 MG, BID
     Route: 048
  5. SILDENAFIL. [Concomitant]
     Active Substance: SILDENAFIL
  6. ADCIRCA [Concomitant]
     Active Substance: TADALAFIL

REACTIONS (23)
  - Cough [Unknown]
  - Choking [Not Recovered/Not Resolved]
  - Peripheral swelling [Unknown]
  - Stomatitis [Unknown]
  - Gingival discolouration [Unknown]
  - Rash [Unknown]
  - Ear congestion [Unknown]
  - Ear discomfort [Unknown]
  - Inappropriate schedule of product administration [Unknown]
  - Tongue discolouration [Unknown]
  - Eye swelling [Unknown]
  - Foot amputation [Unknown]
  - Choking sensation [Unknown]
  - Rash pruritic [Unknown]
  - Renal injury [Unknown]
  - Fluid overload [Unknown]
  - Condition aggravated [Not Recovered/Not Resolved]
  - Pruritus generalised [Unknown]
  - Scleroderma [Unknown]
  - Dyspnoea [Unknown]
  - Hospitalisation [Unknown]
  - White blood cell count increased [Unknown]
  - Thirst [Unknown]
